FAERS Safety Report 4420785-8 (Version None)
Quarter: 2004Q3

REPORT INFORMATION
  Report Type: 
  Country: None (occurrence: None)
  Receive Date: 20040809
  Receipt Date: 20040526
  Transmission Date: 20050211
  Serious: No
  Sender: FDA-Public Use
  Company Number: US-GLAXOSMITHKLINE-A0512353A

PATIENT
  Sex: Female

DRUGS (1)
  1. PAXIL [Suspect]
     Indication: PANIC DISORDER
     Dosage: 10ML SEE DOSAGE TEXT
     Route: 048
     Dates: start: 19940101

REACTIONS (2)
  - BREAST PAIN [None]
  - HYPERTROPHY BREAST [None]
